FAERS Safety Report 15543952 (Version 1)
Quarter: 2018Q4

REPORT INFORMATION
  Report Type: Report from Study
  Country: US (occurrence: US)
  Receive Date: 20181023
  Receipt Date: 20181023
  Transmission Date: 20190205
  Serious: Yes (Death, Hospitalization)
  Sender: FDA-Public Use
  Company Number: US-EXELIXIS-CABO-18016473

PATIENT
  Age: 89 Year
  Sex: Female

DRUGS (10)
  1. MAGNESIUM [Concomitant]
     Active Substance: MAGNESIUM
  2. BIOTIN [Concomitant]
     Active Substance: BIOTIN
  3. POTASSIUM CHLORIDE. [Concomitant]
     Active Substance: POTASSIUM CHLORIDE
  4. HYDROCODONE/ACETAMINOPHEN [Concomitant]
     Active Substance: ACETAMINOPHEN\HYDROCODONE
  5. PROCHLORPERAZINE. [Concomitant]
     Active Substance: PROCHLORPERAZINE
  6. WARFARIN SODIUM. [Concomitant]
     Active Substance: WARFARIN SODIUM
  7. CABOMETYX [Suspect]
     Active Substance: CABOZANTINIB S-MALATE
     Indication: RENAL CANCER
     Dosage: 40 MG, QD
     Route: 048
     Dates: start: 20180911, end: 2018
  8. CHLORDIAZEPOXIDE HYDROCHLORIDE. [Concomitant]
     Active Substance: CHLORDIAZEPOXIDE HYDROCHLORIDE
  9. TRIAMTERENE AND HYDROCHLOROTHIAZIDE [Concomitant]
     Active Substance: HYDROCHLOROTHIAZIDE\TRIAMTERENE
  10. CALCIUM [Concomitant]
     Active Substance: CALCIUM

REACTIONS (5)
  - Back pain [Unknown]
  - Hospitalisation [Unknown]
  - Death [Fatal]
  - Musculoskeletal pain [Unknown]
  - Pain in extremity [Unknown]

NARRATIVE: CASE EVENT DATE: 201810
